FAERS Safety Report 7957603-7 (Version None)
Quarter: 2011Q4

REPORT INFORMATION
  Report Type: 
  Country: None (occurrence: None)
  Receive Date: 20111205
  Receipt Date: 20111125
  Transmission Date: 20120403
  Serious: Yes (Other)
  Sender: FDA-Public Use
  Company Number: AR-NOVOPROD-339104

PATIENT

DRUGS (5)
  1. NITROGLICERINA [Concomitant]
  2. ADRENALINE                         /00003901/ [Concomitant]
  3. NOVOSEVEN RT [Suspect]
     Indication: HAEMORRHAGE
     Dosage: 180 A?G, UNK
     Route: 065
  4. PLASMA [Concomitant]
  5. RED BLOOD CELLS [Concomitant]

REACTIONS (1)
  - THROMBOSIS [None]
